FAERS Safety Report 19847575 (Version 3)
Quarter: 2021Q4

REPORT INFORMATION
  Report Type: Spontaneous
  Country: ES (occurrence: ES)
  Receive Date: 20210917
  Receipt Date: 20211203
  Transmission Date: 20220303
  Serious: Yes (Other)
  Sender: FDA-Public Use
  Company Number: ES-ELI_LILLY_AND_COMPANY-ES202109003929

PATIENT
  Age: 27 Year
  Sex: Male
  Weight: 97.9 kg

DRUGS (3)
  1. DULOXETINE HYDROCHLORIDE [Suspect]
     Active Substance: DULOXETINE HYDROCHLORIDE
     Indication: Anxiety
     Dosage: 1 DOSAGE FORM, DAILY
     Route: 048
     Dates: start: 20210607, end: 20210626
  2. DULOXETINE HYDROCHLORIDE [Suspect]
     Active Substance: DULOXETINE HYDROCHLORIDE
     Indication: Dermatitis atopic
  3. FISH OIL [Concomitant]
     Active Substance: FISH OIL
     Indication: Hypertriglyceridaemia
     Dosage: UNK
     Dates: start: 20210708

REACTIONS (1)
  - Drug-induced liver injury [Recovering/Resolving]

NARRATIVE: CASE EVENT DATE: 20210812
